FAERS Safety Report 7608817-7 (Version None)
Quarter: 2011Q3

REPORT INFORMATION
  Report Type: 
  Country: None (occurrence: None)
  Receive Date: 20110713
  Receipt Date: 20110713
  Transmission Date: 20111222
  Serious: Yes (Life-Threatening, Hospitalization, Other)
  Sender: FDA-Public Use
  Company Number: None

PATIENT
  Age: 31 Year
  Sex: Female
  Weight: 95.2554 kg

DRUGS (1)
  1. NORTREL (NECON GENERIC) 1/35 [Suspect]
     Indication: CONTRACEPTION
     Dosage: 1/35 ONCE DAILY ORALLY
     Route: 048
     Dates: start: 20050101, end: 20110129

REACTIONS (2)
  - SUPERIOR SAGITTAL SINUS THROMBOSIS [None]
  - CEREBRAL HAEMORRHAGE [None]
